FAERS Safety Report 23500634 (Version 1)
Quarter: 2024Q1

REPORT INFORMATION
  Report Type: Spontaneous
  Country: US (occurrence: US)
  Receive Date: 20240208
  Receipt Date: 20240208
  Transmission Date: 20240410
  Serious: No
  Sender: FDA-Public Use
  Company Number: US-RDY-LIT/USA/24/0002036

PATIENT
  Age: 58 Year
  Sex: Female

DRUGS (4)
  1. FLUOXETINE [Suspect]
     Active Substance: FLUOXETINE HYDROCHLORIDE
     Indication: Depression
  2. CLONIDINE [Suspect]
     Active Substance: CLONIDINE
     Indication: Depression
  3. AMITRIPTYLINE [Suspect]
     Active Substance: AMITRIPTYLINE
     Indication: Depression
  4. CLONAZEPAM [Suspect]
     Active Substance: CLONAZEPAM
     Indication: Depression

REACTIONS (1)
  - Drug ineffective [Unknown]
